FAERS Safety Report 10906653 (Version 3)
Quarter: 2015Q2

REPORT INFORMATION
  Report Type: Report from Study
  Country: CA (occurrence: CA)
  Receive Date: 20150312
  Receipt Date: 20150408
  Transmission Date: 20150821
  Serious: Yes (Hospitalization, Other)
  Sender: FDA-Public Use
  Company Number: CA-BIOGENIDEC-2015BI030268

PATIENT
  Age: 44 Year
  Sex: Female
  Weight: 52 kg

DRUGS (15)
  1. EC-ASA [Concomitant]
  2. VITAMIN B12 [Concomitant]
     Active Substance: CYANOCOBALAMIN
  3. METOPROLOL [Concomitant]
     Active Substance: METOPROLOL
  4. WARFARIN [Concomitant]
     Active Substance: WARFARIN
  5. TYSABRI [Suspect]
     Active Substance: NATALIZUMAB
     Indication: MULTIPLE SCLEROSIS
     Route: 042
     Dates: start: 20140814
  6. CALCIUM CARBONATE. [Concomitant]
     Active Substance: CALCIUM CARBONATE
  7. PERCOCET [Concomitant]
     Active Substance: ACETAMINOPHEN\OXYCODONE HYDROCHLORIDE
  8. LEVOTHYROXINE [Concomitant]
     Active Substance: LEVOTHYROXINE
     Route: 048
  9. ENALAPRIL [Concomitant]
     Active Substance: ENALAPRIL
  10. ZOPICLONE [Concomitant]
     Active Substance: ZOPICLONE
  11. IBUPROFEN. [Concomitant]
     Active Substance: IBUPROFEN
  12. OMEGA 3-6-9 [Concomitant]
  13. CITALOPRAM [Concomitant]
     Active Substance: CITALOPRAM HYDROBROMIDE
  14. LEVOTHROXINE [Concomitant]
  15. CLONAZEPAM. [Concomitant]
     Active Substance: CLONAZEPAM
     Route: 048

REACTIONS (5)
  - Cardiac function disturbance postoperative [Not Recovered/Not Resolved]
  - Aortic valve incompetence [Unknown]
  - Mitral valve disease [Unknown]
  - Aortic surgery [Unknown]
  - Aortic valve replacement [Unknown]

NARRATIVE: CASE EVENT DATE: 20150220
